FAERS Safety Report 8748203 (Version 2)
Quarter: 2014Q2

REPORT INFORMATION
  Report Type: Spontaneous
  Country: US (occurrence: US)
  Receive Date: 20120827
  Receipt Date: 20140606
  Transmission Date: 20141212
  Serious: Yes (Other)
  Sender: FDA-Public Use
  Company Number: US-ROCHE-1065790

PATIENT
  Age: 45 Year
  Sex: Male
  Weight: 88.53 kg

DRUGS (2)
  1. ACCUTANE [Suspect]
     Indication: ACNE
     Route: 065
     Dates: start: 19970627, end: 19970916
  2. ACCUTANE [Suspect]
     Indication: ROSACEA

REACTIONS (5)
  - Colitis ulcerative [Unknown]
  - Inflammatory bowel disease [Unknown]
  - Haemorrhoids [Unknown]
  - Rash [Unknown]
  - Blood triglycerides increased [Unknown]
